FAERS Safety Report 5678147-1 (Version None)
Quarter: 2008Q1

REPORT INFORMATION
  Report Type: 
  Country: None (occurrence: None)
  Receive Date: 20080319
  Receipt Date: 20080304
  Transmission Date: 20080703
  Serious: Yes (Hospitalization)
  Sender: FDA-Public Use
  Company Number: 2008S1003960

PATIENT
  Age: 74 Year
  Sex: Female

DRUGS (8)
  1. OMEPRAZOLE [Suspect]
     Indication: KIDNEY INFECTION
     Dosage: 20 MG;DAILY;ORAL
     Route: 048
  2. AMOXICILLINE (AMOXICILLIN TRIHYDRATE) [Suspect]
     Dates: start: 20080214
  3. OSTEODIDRONEL [Concomitant]
  4. BISOPROLOL FUMARATE [Concomitant]
  5. SIMVASTATIN [Concomitant]
  6. ACETYLSALICYLIC ACID SRT [Concomitant]
  7. CALCIUM CARBONATE [Concomitant]
  8. AMOXICILLIN [Concomitant]

REACTIONS (6)
  - DIZZINESS [None]
  - DYSGEUSIA [None]
  - MALAISE [None]
  - PALPITATIONS [None]
  - PARAESTHESIA [None]
  - SENSATION OF HEAVINESS [None]
